FAERS Safety Report 10101863 (Version 1)
Quarter: 2014Q2

REPORT INFORMATION
  Report Type: Report from Study
  Country: PH (occurrence: PH)
  Receive Date: 20140424
  Receipt Date: 20140424
  Transmission Date: 20141212
  Serious: Yes (Death, Hospitalization, Other)
  Sender: FDA-Public Use
  Company Number: PH-BAXTER-2014BAX019406

PATIENT
  Sex: Male

DRUGS (2)
  1. DIANEAL PD2 WITH 1.5% DEXTROSE [Suspect]
     Indication: PERITONEAL DIALYSIS
     Route: 033
     Dates: start: 20121219, end: 20140406
  2. DIANEAL PD2 WITH 4.25% DEXTROSE [Suspect]
     Indication: PERITONEAL DIALYSIS
     Route: 033
     Dates: start: 20121219, end: 20140406

REACTIONS (6)
  - Ventricular arrhythmia [Fatal]
  - Cardiac failure [Fatal]
  - Convulsion [Unknown]
  - Blood pressure immeasurable [Unknown]
  - Vomiting [Unknown]
  - Hypokalaemia [Unknown]
